FAERS Safety Report 5703447-6 (Version None)
Quarter: 2008Q2

REPORT INFORMATION
  Report Type: 
  Country: None (occurrence: None)
  Receive Date: 20080411
  Receipt Date: 20080401
  Transmission Date: 20081010
  Serious: Yes (Other)
  Sender: FDA-Public Use
  Company Number: FR-PFIZER INC-2008029393

PATIENT
  Age: 29 Year
  Sex: Male

DRUGS (3)
  1. VORICONAZOLE [Suspect]
     Indication: EYE INFECTION FUNGAL
     Route: 042
  2. VORICONAZOLE [Suspect]
     Route: 042
  3. VORICONAZOLE [Suspect]
     Route: 048

REACTIONS (2)
  - DRUG INEFFECTIVE [None]
  - DRUG LEVEL DECREASED [None]
